FAERS Safety Report 6190254-6 (Version None)
Quarter: 2009Q2

REPORT INFORMATION
  Report Type: 
  Country: None (occurrence: None)
  Receive Date: 20090514
  Receipt Date: 20090506
  Transmission Date: 20091009
  Serious: Yes (Other)
  Sender: FDA-Public Use
  Company Number: CH-MERCK-0905USA01393

PATIENT
  Age: 39 Year
  Sex: Male

DRUGS (3)
  1. DECADRON [Suspect]
     Indication: PREMEDICATION
     Route: 048
  2. CLEMASTINE [Suspect]
     Indication: PREMEDICATION
     Route: 065
  3. RANITIDINE [Suspect]
     Indication: PREMEDICATION
     Route: 065

REACTIONS (1)
  - DRUG INEFFECTIVE [None]
